FAERS Safety Report 7964591 (Version 3)
Quarter: 2012Q4

REPORT INFORMATION
  Report Type: Report from Study
  Country: JP (occurrence: JP)
  Receive Date: 20110527
  Receipt Date: 20121210
  Transmission Date: 20130627
  Serious: Yes (Hospitalization)
  Sender: FDA-Public Use
  Company Number: JP-CELGENEUS-087-21880-11051803

PATIENT
  Age: 80 Year
  Sex: Male

DRUGS (8)
  1. REVLIMID [Suspect]
     Indication: MULTIPLE MYELOMA
     Dosage: 10 Milligram
     Route: 048
     Dates: start: 20110114, end: 20110131
  2. REVLIMID [Suspect]
     Dosage: 5 Milligram
     Route: 048
     Dates: start: 20110201, end: 20110203
  3. MYSLEE [Concomitant]
     Indication: INSOMNIA
     Dosage: 10 Milligram
     Route: 048
     Dates: start: 20100310, end: 20110303
  4. METHYCOBAL [Concomitant]
     Indication: PERIPHERAL NERVE DISORDER NOS
     Dosage: .5 Milligram
     Route: 048
     Dates: start: 20101014, end: 20110203
  5. WARFARIN POTASSIUM [Concomitant]
     Indication: VENOUS THROMBOSIS DEEP LIMB
     Dosage: 2 Milligram
     Route: 048
     Dates: start: 20100910, end: 20110127
  6. WARFARIN POTASSIUM [Concomitant]
     Dosage: 1.5 Milligram
     Route: 048
     Dates: start: 20110128, end: 20110203
  7. WARFARIN POTASSIUM [Concomitant]
     Dosage: 1 Milligram
     Route: 048
     Dates: start: 20110204, end: 20110206
  8. ROHYPNOL [Concomitant]
     Indication: INSOMNIA
     Dosage: 2 Milligram
     Route: 048
     Dates: start: 20110204, end: 20110303

REACTIONS (6)
  - Renal impairment [Recovering/Resolving]
  - Rhabdomyolysis [Recovering/Resolving]
  - Pyrexia [Recovering/Resolving]
  - Seborrhoeic dermatitis [Recovering/Resolving]
  - Constipation [Recovering/Resolving]
  - Haemoglobin decreased [Recovering/Resolving]
